FAERS Safety Report 22268978 (Version 2)
Quarter: 2023Q2

REPORT INFORMATION
  Report Type: Spontaneous
  Country: ES (occurrence: ES)
  Receive Date: 20230501
  Receipt Date: 20230508
  Transmission Date: 20230722
  Serious: Yes (Other)
  Sender: FDA-Public Use
  Company Number: ES-002147023-NVSC2023ES059135

PATIENT
  Age: 71 Year
  Sex: Male

DRUGS (3)
  1. BEOVU [Suspect]
     Active Substance: BROLUCIZUMAB-DBLL
     Indication: Age-related macular degeneration
     Dosage: 1 DOSAGE FORM, QMO
     Route: 031
     Dates: start: 20221201
  2. BEOVU [Suspect]
     Active Substance: BROLUCIZUMAB-DBLL
     Dosage: 1 DOSAGE FORM, QMO
     Route: 031
     Dates: start: 20230103
  3. BEOVU [Suspect]
     Active Substance: BROLUCIZUMAB-DBLL
     Dosage: 1 DOSAGE FORM, QMO
     Route: 031
     Dates: start: 20230207

REACTIONS (8)
  - Papilloedema [Unknown]
  - Iridocyclitis [Recovering/Resolving]
  - Uveitis [Recovering/Resolving]
  - Visual acuity reduced [Recovering/Resolving]
  - Vitritis [Recovering/Resolving]
  - Blindness transient [Recovering/Resolving]
  - Eye pain [Recovering/Resolving]
  - Conjunctival hyperaemia [Unknown]

NARRATIVE: CASE EVENT DATE: 20230222
